FAERS Safety Report 4754774-0 (Version None)
Quarter: 2005Q3

REPORT INFORMATION
  Report Type: 
  Country: None (occurrence: None)
  Receive Date: 20050801
  Receipt Date: 20050801
  Transmission Date: 20060218
  Serious: Yes (Life-Threatening, Hospitalization, Other)
  Sender: FDA-Public Use
  Company Number: None

PATIENT
  Age: 25 Year
  Sex: Female
  Weight: 68.0396 kg

DRUGS (2)
  1. TRIPHASIL-21 [Suspect]
     Indication: POST COITAL CONTRACEPTION
     Dosage: 4 TABS FOLLOWED 12 HRS LATER BY 4 MORE TABS
  2. ADVIL [Concomitant]

REACTIONS (1)
  - ECTOPIC PREGNANCY [None]
